FAERS Safety Report 6851491-8 (Version None)
Quarter: 2010Q3

REPORT INFORMATION
  Report Type: 
  Country: None (occurrence: None)
  Receive Date: 20100717
  Receipt Date: 20080116
  Transmission Date: 20110219
  Serious: No
  Sender: FDA-Public Use
  Company Number: US-PFIZER INC-2008007018

PATIENT
  Sex: Female
  Weight: 79.545 kg

DRUGS (5)
  1. CHANTIX [Suspect]
     Indication: SMOKING CESSATION THERAPY
     Dates: start: 20071001
  2. PREMARIN [Concomitant]
  3. DOXEPIN HCL [Concomitant]
  4. NAPROXEN [Concomitant]
  5. SIMVASTATIN [Concomitant]

REACTIONS (1)
  - ABNORMAL DREAMS [None]
